FAERS Safety Report 20805825 (Version 2)
Quarter: 2022Q3

REPORT INFORMATION
  Report Type: Report from Study
  Country: CH (occurrence: CH)
  Receive Date: 20220510
  Receipt Date: 20220812
  Transmission Date: 20221026
  Serious: Yes (Other)
  Sender: FDA-Public Use
  Company Number: SZ-LAURUS LABS LIMITED-2022LAU000002

PATIENT
  Age: 31 Year
  Sex: Female

DRUGS (4)
  1. LOPINAVIR\RITONAVIR [Suspect]
     Active Substance: LOPINAVIR\RITONAVIR
     Indication: Asymptomatic HIV infection
     Route: 048
  2. LAMIVUDINE [Suspect]
     Active Substance: LAMIVUDINE
     Indication: Asymptomatic HIV infection
     Route: 048
  3. TENOFOVIR DISOPROXIL FUMARATE [Suspect]
     Active Substance: TENOFOVIR DISOPROXIL FUMARATE
     Indication: Asymptomatic HIV infection
     Route: 048
  4. RETROVIR [Suspect]
     Active Substance: ZIDOVUDINE
     Indication: Asymptomatic HIV infection
     Dosage: 2 MILLIGRAM/KILOGRAM PER HOUR
     Route: 042

REACTIONS (2)
  - Preterm premature rupture of membranes [Unknown]
  - Maternal exposure during pregnancy [Unknown]
